FAERS Safety Report 7769395-5 (Version None)
Quarter: 2011Q3

REPORT INFORMATION
  Report Type: 
  Country: None (occurrence: None)
  Receive Date: 20110922
  Receipt Date: 20110519
  Transmission Date: 20111222
  Serious: No
  Sender: FDA-Public Use
  Company Number: US-ASTRAZENECA-2011SE30930

PATIENT
  Sex: Male

DRUGS (2)
  1. CYMBALTA [Suspect]
     Indication: SLEEP DISORDER
  2. SEROQUEL [Suspect]
     Indication: SLEEP DISORDER
     Route: 048

REACTIONS (6)
  - OFF LABEL USE [None]
  - ADVERSE EVENT [None]
  - THERAPEUTIC RESPONSE UNEXPECTED [None]
  - PAIN [None]
  - PSYCHOMOTOR HYPERACTIVITY [None]
  - TREMOR [None]
